FAERS Safety Report 25412479 (Version 1)
Quarter: 2025Q2

REPORT INFORMATION
  Report Type: Spontaneous
  Country: US (occurrence: None)
  Receive Date: 20250606
  Receipt Date: 20250606
  Transmission Date: 20250717
  Serious: No
  Sender: FDA-CTU
  Company Number: None

PATIENT
  Age: 62 Year
  Sex: Female
  Weight: 94.05 kg

DRUGS (1)
  1. ENTYVIO [Suspect]
     Active Substance: VEDOLIZUMAB

REACTIONS (6)
  - Bladder pain [None]
  - Renal pain [None]
  - Abdominal pain upper [None]
  - Gastritis [None]
  - Breast inflammation [None]
  - Pelvic inflammatory disease [None]

NARRATIVE: CASE EVENT DATE: 20250417
